FAERS Safety Report 6449438-1 (Version None)
Quarter: 2009Q4

REPORT INFORMATION
  Report Type: 
  Country: None (occurrence: None)
  Receive Date: 20091120
  Receipt Date: 20091116
  Transmission Date: 20100525
  Serious: Yes (Death, Hospitalization, Other)
  Sender: FDA-Public Use
  Company Number: IN-ROXANE LABORATORIES, INC.-2009-RO-01170RO

PATIENT
  Age: 55 Year
  Sex: Male

DRUGS (6)
  1. AZATHIOPRINE [Suspect]
     Indication: IMMUNOSUPPRESSANT DRUG THERAPY
  2. STEROIDS [Suspect]
     Indication: IMMUNOSUPPRESSANT DRUG THERAPY
  3. RIFAMPICIN [Suspect]
     Indication: DISSEMINATED TUBERCULOSIS
  4. ISONIAZID [Suspect]
     Indication: DISSEMINATED TUBERCULOSIS
  5. PYRAZINAMIDE [Suspect]
     Indication: DISSEMINATED TUBERCULOSIS
  6. OFLOXACIN [Suspect]
     Indication: DISSEMINATED TUBERCULOSIS

REACTIONS (6)
  - ACID FAST BACILLI INFECTION [None]
  - CENTRAL NERVOUS SYSTEM LESION [None]
  - DISSEMINATED TUBERCULOSIS [None]
  - DYSPNOEA [None]
  - EXOPHTHALMOS [None]
  - GRAFT DYSFUNCTION [None]
